FAERS Safety Report 25011634 (Version 3)
Quarter: 2025Q3

REPORT INFORMATION
  Report Type: Spontaneous
  Country: CA (occurrence: CA)
  Receive Date: 20250226
  Receipt Date: 20250810
  Transmission Date: 20251020
  Serious: Yes (Life-Threatening, Hospitalization, Disabling, Other)
  Sender: BRISTOL-MYERS SQUIBB COMPANY
  Company Number: CA-BRISTOL-MYERS SQUIBB COMPANY-2025-023401

PATIENT
  Age: 43 Year
  Sex: Female

DRUGS (327)
  1. ORENCIA [Suspect]
     Active Substance: ABATACEPT
     Indication: Rheumatoid arthritis
     Route: 058
  2. ORENCIA [Suspect]
     Active Substance: ABATACEPT
     Route: 058
  3. ORENCIA [Suspect]
     Active Substance: ABATACEPT
     Route: 058
  4. ORENCIA [Suspect]
     Active Substance: ABATACEPT
     Route: 058
  5. ORENCIA [Suspect]
     Active Substance: ABATACEPT
     Route: 058
  6. ORENCIA [Suspect]
     Active Substance: ABATACEPT
     Indication: Rheumatoid arthritis
     Route: 042
  7. ORENCIA [Suspect]
     Active Substance: ABATACEPT
     Route: 041
  8. ORENCIA [Suspect]
     Active Substance: ABATACEPT
     Route: 042
  9. TRIAMCINOLONE ACETONIDE [Suspect]
     Active Substance: TRIAMCINOLONE ACETONIDE
     Indication: Product used for unknown indication
  10. ACETAMINOPHEN [Concomitant]
     Active Substance: ACETAMINOPHEN
     Indication: Rheumatoid arthritis
  11. ACETAMINOPHEN [Concomitant]
     Active Substance: ACETAMINOPHEN
  12. ACETAMINOPHEN [Concomitant]
     Active Substance: ACETAMINOPHEN
  13. ACTEMRA [Concomitant]
     Active Substance: TOCILIZUMAB
     Indication: Rheumatoid arthritis
  14. ACTEMRA [Concomitant]
     Active Substance: TOCILIZUMAB
     Route: 042
  15. ACTEMRA [Concomitant]
     Active Substance: TOCILIZUMAB
     Route: 042
  16. ACTEMRA [Concomitant]
     Active Substance: TOCILIZUMAB
  17. ACTEMRA [Concomitant]
     Active Substance: TOCILIZUMAB
     Route: 042
  18. ACTEMRA [Concomitant]
     Active Substance: TOCILIZUMAB
     Route: 048
  19. ACTEMRA [Concomitant]
     Active Substance: TOCILIZUMAB
     Route: 061
  20. ACTEMRA [Concomitant]
     Active Substance: TOCILIZUMAB
  21. ACTEMRA [Concomitant]
     Active Substance: TOCILIZUMAB
     Route: 042
  22. ACTEMRA [Concomitant]
     Active Substance: TOCILIZUMAB
  23. ACTEMRA [Concomitant]
     Active Substance: TOCILIZUMAB
     Route: 058
  24. ALENDRONATE SODIUM [Concomitant]
     Active Substance: ALENDRONATE SODIUM
     Indication: Rheumatoid arthritis
     Route: 048
  25. ALENDRONATE SODIUM [Concomitant]
     Active Substance: ALENDRONATE SODIUM
     Route: 048
  26. ALENDRONATE SODIUM [Concomitant]
     Active Substance: ALENDRONATE SODIUM
     Route: 048
  27. ALENDRONATE SODIUM [Concomitant]
     Active Substance: ALENDRONATE SODIUM
  28. ALENDRONIC ACID [Concomitant]
     Active Substance: ALENDRONIC ACID
     Indication: Rheumatoid arthritis
  29. PREDNISONE [Concomitant]
     Active Substance: PREDNISONE
     Indication: Rheumatoid arthritis
  30. PREDNISONE [Concomitant]
     Active Substance: PREDNISONE
  31. ARAVA [Concomitant]
     Active Substance: LEFLUNOMIDE
     Indication: Rheumatoid arthritis
     Route: 048
  32. ARAVA [Concomitant]
     Active Substance: LEFLUNOMIDE
     Route: 048
  33. ARAVA [Concomitant]
     Active Substance: LEFLUNOMIDE
  34. ARAVA [Concomitant]
     Active Substance: LEFLUNOMIDE
     Route: 048
  35. ARAVA [Concomitant]
     Active Substance: LEFLUNOMIDE
     Route: 048
  36. CALCIUM CARBONATE [Concomitant]
     Active Substance: CALCIUM CARBONATE
     Indication: Product used for unknown indication
  37. CALCIUM CARBONATE [Concomitant]
     Active Substance: CALCIUM CARBONATE
  38. CALCIUM GLUBIONATE [Concomitant]
     Active Substance: CALCIUM GLUBIONATE
     Indication: Product used for unknown indication
     Route: 048
  39. CELECOXIB [Concomitant]
     Active Substance: CELECOXIB
     Indication: Product used for unknown indication
     Route: 048
  40. CERTOLIZUMAB PEGOL [Concomitant]
     Active Substance: CERTOLIZUMAB PEGOL
     Indication: Rheumatoid arthritis
     Route: 058
  41. CETIRIZINE HYDROCHLORIDE [Concomitant]
     Active Substance: CETIRIZINE HYDROCHLORIDE
     Indication: Rheumatoid arthritis
     Route: 016
  42. CETIRIZINE HYDROCHLORIDE [Concomitant]
     Active Substance: CETIRIZINE HYDROCHLORIDE
     Route: 005
  43. CETIRIZINE HYDROCHLORIDE [Concomitant]
     Active Substance: CETIRIZINE HYDROCHLORIDE
  44. CETIRIZINE HYDROCHLORIDE AND PSEUDOEPHEDRINE HYDROCHLORIDE [Concomitant]
     Active Substance: CETIRIZINE HYDROCHLORIDE\PSEUDOEPHEDRINE HYDROCHLORIDE
     Indication: Rheumatoid arthritis
  45. CETIRIZINE HYDROCHLORIDE AND PSEUDOEPHEDRINE HYDROCHLORIDE [Concomitant]
     Active Substance: CETIRIZINE HYDROCHLORIDE\PSEUDOEPHEDRINE HYDROCHLORIDE
  46. CETIRIZINE HYDROCHLORIDE AND PSEUDOEPHEDRINE HYDROCHLORIDE [Concomitant]
     Active Substance: CETIRIZINE HYDROCHLORIDE\PSEUDOEPHEDRINE HYDROCHLORIDE
  47. CETIRIZINE HYDROCHLORIDE AND PSEUDOEPHEDRINE HYDROCHLORIDE [Concomitant]
     Active Substance: CETIRIZINE HYDROCHLORIDE\PSEUDOEPHEDRINE HYDROCHLORIDE
     Route: 048
  48. CETIRIZINE HYDROCHLORIDE AND PSEUDOEPHEDRINE HYDROCHLORIDE [Concomitant]
     Active Substance: CETIRIZINE HYDROCHLORIDE\PSEUDOEPHEDRINE HYDROCHLORIDE
  49. CETIRIZINE HYDROCHLORIDE AND PSEUDOEPHEDRINE HYDROCHLORIDE [Concomitant]
     Active Substance: CETIRIZINE HYDROCHLORIDE\PSEUDOEPHEDRINE HYDROCHLORIDE
  50. CETIRIZINE HYDROCHLORIDE AND PSEUDOEPHEDRINE HYDROCHLORIDE [Concomitant]
     Active Substance: CETIRIZINE HYDROCHLORIDE\PSEUDOEPHEDRINE HYDROCHLORIDE
     Route: 048
  51. CETIRIZINE HYDROCHLORIDE AND PSEUDOEPHEDRINE HYDROCHLORIDE [Concomitant]
     Active Substance: CETIRIZINE HYDROCHLORIDE\PSEUDOEPHEDRINE HYDROCHLORIDE
  52. CETIRIZINE HYDROCHLORIDE AND PSEUDOEPHEDRINE HYDROCHLORIDE [Concomitant]
     Active Substance: CETIRIZINE HYDROCHLORIDE\PSEUDOEPHEDRINE HYDROCHLORIDE
  53. CETIRIZINE HYDROCHLORIDE AND PSEUDOEPHEDRINE HYDROCHLORIDE [Concomitant]
     Active Substance: CETIRIZINE HYDROCHLORIDE\PSEUDOEPHEDRINE HYDROCHLORIDE
  54. CETIRIZINE HYDROCHLORIDE AND PSEUDOEPHEDRINE HYDROCHLORIDE [Concomitant]
     Active Substance: CETIRIZINE HYDROCHLORIDE\PSEUDOEPHEDRINE HYDROCHLORIDE
  55. CETIRIZINE HYDROCHLORIDE AND PSEUDOEPHEDRINE HYDROCHLORIDE [Concomitant]
     Active Substance: CETIRIZINE HYDROCHLORIDE\PSEUDOEPHEDRINE HYDROCHLORIDE
  56. CETIRIZINE HYDROCHLORIDE AND PSEUDOEPHEDRINE HYDROCHLORIDE [Concomitant]
     Active Substance: CETIRIZINE HYDROCHLORIDE\PSEUDOEPHEDRINE HYDROCHLORIDE
  57. CHLORHEXIDINE [Concomitant]
     Active Substance: CHLORHEXIDINE
     Indication: Product used for unknown indication
  58. CHLORHEXIDINE [Concomitant]
     Active Substance: CHLORHEXIDINE
     Route: 061
  59. CIMZIA [Concomitant]
     Active Substance: CERTOLIZUMAB PEGOL
     Indication: Rheumatoid arthritis
     Route: 058
  60. CIMZIA [Concomitant]
     Active Substance: CERTOLIZUMAB PEGOL
     Indication: Psoriasis
     Route: 058
  61. CIMZIA [Concomitant]
     Active Substance: CERTOLIZUMAB PEGOL
     Route: 058
  62. CIMZIA [Concomitant]
     Active Substance: CERTOLIZUMAB PEGOL
     Route: 058
  63. CIMZIA [Concomitant]
     Active Substance: CERTOLIZUMAB PEGOL
  64. CIMZIA [Concomitant]
     Active Substance: CERTOLIZUMAB PEGOL
     Route: 058
  65. CORTISONE (HYDROCORTISONE) [Concomitant]
     Active Substance: HYDROCORTISONE
     Indication: Rheumatoid arthritis
     Route: 003
  66. CORTISONE (HYDROCORTISONE) [Concomitant]
     Active Substance: HYDROCORTISONE
     Route: 048
  67. CORTISONE (HYDROCORTISONE) [Concomitant]
     Active Substance: HYDROCORTISONE
     Route: 058
  68. CORTISONE (HYDROCORTISONE) [Concomitant]
     Active Substance: HYDROCORTISONE
  69. CORTISONE ACETATE [Concomitant]
     Active Substance: CORTISONE ACETATE
     Indication: Rheumatoid arthritis
     Route: 048
  70. CORTISONE ACETATE [Concomitant]
     Active Substance: CORTISONE ACETATE
  71. CORTISONE ACETATE [Concomitant]
     Active Substance: CORTISONE ACETATE
     Route: 061
  72. CORTISONE ACETATE [Concomitant]
     Active Substance: CORTISONE ACETATE
  73. CORTISONE ACETATE [Concomitant]
     Active Substance: CORTISONE ACETATE
  74. CORTISONE ACETATE [Concomitant]
     Active Substance: CORTISONE ACETATE
  75. COSENTYX [Concomitant]
     Active Substance: SECUKINUMAB
     Indication: Rheumatoid arthritis
     Route: 042
  76. COSENTYX [Concomitant]
     Active Substance: SECUKINUMAB
     Indication: Psoriatic arthropathy
  77. DESOXIMETASONE [Concomitant]
     Active Substance: DESOXIMETASONE
     Indication: Rheumatoid arthritis
     Route: 003
  78. DESOXIMETASONE [Concomitant]
     Active Substance: DESOXIMETASONE
     Route: 003
  79. DESOXIMETASONE [Concomitant]
     Active Substance: DESOXIMETASONE
     Route: 003
  80. DESOXIMETASONE [Concomitant]
     Active Substance: DESOXIMETASONE
     Route: 058
  81. DESOXIMETASONE [Concomitant]
     Active Substance: DESOXIMETASONE
     Route: 048
  82. DESOXIMETASONE [Concomitant]
     Active Substance: DESOXIMETASONE
     Route: 058
  83. DESOXIMETASONE [Concomitant]
     Active Substance: DESOXIMETASONE
     Route: 048
  84. DESOXIMETASONE [Concomitant]
     Active Substance: DESOXIMETASONE
     Route: 048
  85. DESOXIMETASONE [Concomitant]
     Active Substance: DESOXIMETASONE
     Route: 048
  86. DESOXIMETASONE [Concomitant]
     Active Substance: DESOXIMETASONE
  87. DESOXIMETASONE [Concomitant]
     Active Substance: DESOXIMETASONE
     Route: 058
  88. DESOXIMETASONE [Concomitant]
     Active Substance: DESOXIMETASONE
     Route: 003
  89. DESOXIMETASONE [Concomitant]
     Active Substance: DESOXIMETASONE
     Route: 003
  90. DESOXIMETASONE [Concomitant]
     Active Substance: DESOXIMETASONE
     Route: 048
  91. DESOXIMETASONE [Concomitant]
     Active Substance: DESOXIMETASONE
  92. DICLOFENAC DIETHYLAMINE [Concomitant]
     Active Substance: DICLOFENAC DIETHYLAMINE
     Indication: Product used for unknown indication
  93. DICLOFENAC DIETHYLAMINE [Concomitant]
     Active Substance: DICLOFENAC DIETHYLAMINE
  94. DICLOFENAC DIETHYLAMINE [Concomitant]
     Active Substance: DICLOFENAC DIETHYLAMINE
  95. DICLOFENAC SODIUM [Concomitant]
     Active Substance: DICLOFENAC SODIUM
     Indication: Product used for unknown indication
  96. DOXYCYCLINE [Concomitant]
     Active Substance: DOXYCYCLINE
     Indication: Product used for unknown indication
  97. ENBREL [Concomitant]
     Active Substance: ETANERCEPT
     Indication: Rheumatoid arthritis
     Route: 058
  98. ENBREL [Concomitant]
     Active Substance: ETANERCEPT
     Indication: Psoriatic arthropathy
     Route: 058
  99. ENBREL [Concomitant]
     Active Substance: ETANERCEPT
     Route: 058
  100. ENBREL [Concomitant]
     Active Substance: ETANERCEPT
     Route: 058
  101. ENBREL [Concomitant]
     Active Substance: ETANERCEPT
     Route: 058
  102. ENBREL [Concomitant]
     Active Substance: ETANERCEPT
  103. ERELZI [Concomitant]
     Active Substance: ETANERCEPT-SZZS
     Indication: Rheumatoid arthritis
     Route: 058
  104. ERELZI [Concomitant]
     Active Substance: ETANERCEPT-SZZS
  105. ERELZI [Concomitant]
     Active Substance: ETANERCEPT-SZZS
  106. ERELZI [Concomitant]
     Active Substance: ETANERCEPT-SZZS
     Route: 058
  107. ERELZI [Concomitant]
     Active Substance: ETANERCEPT-SZZS
  108. ERELZI [Concomitant]
     Active Substance: ETANERCEPT-SZZS
  109. ERELZI [Concomitant]
     Active Substance: ETANERCEPT-SZZS
  110. ERELZI [Concomitant]
     Active Substance: ETANERCEPT-SZZS
  111. FLUMETHASONE PIVALATE [Concomitant]
     Active Substance: FLUMETHASONE PIVALATE
     Indication: Rheumatoid arthritis
     Route: 058
  112. FLUMETHASONE PIVALATE [Concomitant]
     Active Substance: FLUMETHASONE PIVALATE
     Route: 003
  113. FOLIC ACID [Concomitant]
     Active Substance: FOLIC ACID
     Indication: Rheumatoid arthritis
  114. FOLIC ACID [Concomitant]
     Active Substance: FOLIC ACID
     Route: 058
  115. FOLIC ACID [Concomitant]
     Active Substance: FOLIC ACID
  116. FOLIC ACID [Concomitant]
     Active Substance: FOLIC ACID
     Route: 048
  117. FOLIC ACID [Concomitant]
     Active Substance: FOLIC ACID
  118. FOLIC ACID [Concomitant]
     Active Substance: FOLIC ACID
  119. FOLIC ACID [Concomitant]
     Active Substance: FOLIC ACID
  120. FOLIC ACID [Concomitant]
     Active Substance: FOLIC ACID
  121. FOLIC ACID [Concomitant]
     Active Substance: FOLIC ACID
  122. FOLIC ACID [Concomitant]
     Active Substance: FOLIC ACID
     Route: 048
  123. FOLIC ACID [Concomitant]
     Active Substance: FOLIC ACID
  124. FOLIC ACID [Concomitant]
     Active Substance: FOLIC ACID
  125. FOLIC ACID [Concomitant]
     Active Substance: FOLIC ACID
  126. FOLIC ACID [Concomitant]
     Active Substance: FOLIC ACID
     Route: 048
  127. FOLIC ACID [Concomitant]
     Active Substance: FOLIC ACID
  128. FOLIC ACID [Concomitant]
     Active Substance: FOLIC ACID
  129. FOSAMAX [Concomitant]
     Active Substance: ALENDRONATE SODIUM
     Indication: Rheumatoid arthritis
     Route: 048
  130. FOSAMAX [Concomitant]
     Active Substance: ALENDRONATE SODIUM
     Route: 048
  131. FOSAMAX [Concomitant]
     Active Substance: ALENDRONATE SODIUM
  132. GOLIMUMAB [Concomitant]
     Active Substance: GOLIMUMAB
     Indication: Rheumatoid arthritis
     Route: 058
  133. GOLIMUMAB [Concomitant]
     Active Substance: GOLIMUMAB
  134. HUMIRA [Concomitant]
     Active Substance: ADALIMUMAB
     Indication: Rheumatoid arthritis
     Route: 057
  135. HUMIRA [Concomitant]
     Active Substance: ADALIMUMAB
     Indication: Psoriatic arthropathy
     Route: 058
  136. HUMIRA [Concomitant]
     Active Substance: ADALIMUMAB
     Route: 057
  137. HUMIRA [Concomitant]
     Active Substance: ADALIMUMAB
     Route: 058
  138. HUMIRA [Concomitant]
     Active Substance: ADALIMUMAB
     Route: 058
  139. HYDROXYCHLOROQUINE [Concomitant]
     Active Substance: HYDROXYCHLOROQUINE
     Indication: Rheumatoid arthritis
  140. HYDROXYCHLOROQUINE [Concomitant]
     Active Substance: HYDROXYCHLOROQUINE
  141. HYDROXYCHLOROQUINE [Concomitant]
     Active Substance: HYDROXYCHLOROQUINE
  142. HYDROXYCHLOROQUINE [Concomitant]
     Active Substance: HYDROXYCHLOROQUINE
     Route: 048
  143. HYDROXYCHLOROQUINE [Concomitant]
     Active Substance: HYDROXYCHLOROQUINE
  144. HYDROXYCHLOROQUINE [Concomitant]
     Active Substance: HYDROXYCHLOROQUINE
  145. HYDROXYCHLOROQUINE [Concomitant]
     Active Substance: HYDROXYCHLOROQUINE
     Route: 048
  146. HYDROXYCHLOROQUINE [Concomitant]
     Active Substance: HYDROXYCHLOROQUINE
  147. HYDROXYCHLOROQUINE [Concomitant]
     Active Substance: HYDROXYCHLOROQUINE
     Route: 066
  148. HYDROXYCHLOROQUINE SULFATE [Concomitant]
     Active Substance: HYDROXYCHLOROQUINE SULFATE
     Indication: Rheumatoid arthritis
  149. HYDROXYCHLOROQUINE SULFATE [Concomitant]
     Active Substance: HYDROXYCHLOROQUINE SULFATE
  150. HYDROXYCHLOROQUINE SULFATE [Concomitant]
     Active Substance: HYDROXYCHLOROQUINE SULFATE
  151. HYDROXYCHLOROQUINE SULFATE [Concomitant]
     Active Substance: HYDROXYCHLOROQUINE SULFATE
     Route: 048
  152. HYDROXYCHLOROQUINE SULFATE [Concomitant]
     Active Substance: HYDROXYCHLOROQUINE SULFATE
  153. HYDROXYCHLOROQUINE SULFATE [Concomitant]
     Active Substance: HYDROXYCHLOROQUINE SULFATE
  154. HYDROXYCHLOROQUINE SULFATE [Concomitant]
     Active Substance: HYDROXYCHLOROQUINE SULFATE
     Route: 066
  155. HYRIMOZ [Concomitant]
     Active Substance: ADALIMUMAB-ADAZ
     Indication: Rheumatoid arthritis
     Route: 058
  156. HYRIMOZ [Concomitant]
     Active Substance: ADALIMUMAB-ADAZ
     Route: 058
  157. HYRIMOZ [Concomitant]
     Active Substance: ADALIMUMAB-ADAZ
     Route: 048
  158. HYRIMOZ [Concomitant]
     Active Substance: ADALIMUMAB-ADAZ
     Route: 058
  159. HYRIMOZ [Concomitant]
     Active Substance: ADALIMUMAB-ADAZ
  160. HYRIMOZ [Concomitant]
     Active Substance: ADALIMUMAB-ADAZ
  161. INFLIXIMAB [Concomitant]
     Active Substance: INFLIXIMAB
     Indication: Rheumatoid arthritis
     Route: 042
  162. INFLIXIMAB [Concomitant]
     Active Substance: INFLIXIMAB
     Route: 042
  163. INFLIXIMAB [Concomitant]
     Active Substance: INFLIXIMAB
  164. INFLIXIMAB [Concomitant]
     Active Substance: INFLIXIMAB
  165. INFLIXIMAB [Concomitant]
     Active Substance: INFLIXIMAB
  166. INFLIXIMAB [Concomitant]
     Active Substance: INFLIXIMAB
  167. KEVZARA [Concomitant]
     Active Substance: SARILUMAB
     Indication: Rheumatoid arthritis
  168. METHOTREXATE [Concomitant]
     Active Substance: METHOTREXATE
     Indication: Rheumatoid arthritis
     Dosage: INTRA- ARTERIAL
     Route: 058
  169. METHOTREXATE [Concomitant]
     Active Substance: METHOTREXATE
  170. METHOTREXATE [Concomitant]
     Active Substance: METHOTREXATE
     Route: 048
  171. METHOTREXATE [Concomitant]
     Active Substance: METHOTREXATE
     Route: 048
  172. METHOTREXATE [Concomitant]
     Active Substance: METHOTREXATE
     Route: 013
  173. METHOTREXATE [Concomitant]
     Active Substance: METHOTREXATE
     Route: 030
  174. METHOTREXATE [Concomitant]
     Active Substance: METHOTREXATE
     Route: 048
  175. METHOTREXATE [Concomitant]
     Active Substance: METHOTREXATE
     Route: 058
  176. METHOTREXATE [Concomitant]
     Active Substance: METHOTREXATE
     Route: 048
  177. METHOTREXATE [Concomitant]
     Active Substance: METHOTREXATE
  178. METHOTREXATE [Concomitant]
     Active Substance: METHOTREXATE
     Route: 016
  179. METHOTREXATE [Concomitant]
     Active Substance: METHOTREXATE
     Route: 048
  180. METHOTREXATE [Concomitant]
     Active Substance: METHOTREXATE
  181. METHOTREXATE [Concomitant]
     Active Substance: METHOTREXATE
     Route: 048
  182. METHOTREXATE [Concomitant]
     Active Substance: METHOTREXATE
     Route: 048
  183. METHOTREXATE [Concomitant]
     Active Substance: METHOTREXATE
     Route: 048
  184. METHOTREXATE [Concomitant]
     Active Substance: METHOTREXATE
     Route: 048
  185. METHOTREXATE [Concomitant]
     Active Substance: METHOTREXATE
     Route: 048
  186. METHOTREXATE [Concomitant]
     Active Substance: METHOTREXATE
     Route: 048
  187. METHOTREXATE [Concomitant]
     Active Substance: METHOTREXATE
  188. METHOTREXATE [Concomitant]
     Active Substance: METHOTREXATE
     Route: 048
  189. METHOTREXATE [Concomitant]
     Active Substance: METHOTREXATE
  190. METHOTREXATE [Concomitant]
     Active Substance: METHOTREXATE
     Route: 048
  191. METHOTREXATE [Concomitant]
     Active Substance: METHOTREXATE
     Route: 048
  192. METHOTREXATE [Concomitant]
     Active Substance: METHOTREXATE
     Route: 048
  193. METHOTREXATE [Concomitant]
     Active Substance: METHOTREXATE
     Route: 048
  194. METHOTREXATE [Concomitant]
     Active Substance: METHOTREXATE
  195. NAPROXEN SODIUM [Concomitant]
     Active Substance: NAPROXEN SODIUM
     Indication: Rheumatoid arthritis
  196. NAPROXEN SODIUM [Concomitant]
     Active Substance: NAPROXEN SODIUM
  197. NAPROXEN SODIUM [Concomitant]
     Active Substance: NAPROXEN SODIUM
  198. NAPROXEN SODIUM [Concomitant]
     Active Substance: NAPROXEN SODIUM
  199. OTEZLA [Concomitant]
     Active Substance: APREMILAST
     Indication: Product used for unknown indication
     Route: 048
  200. OXYCODONE [Concomitant]
     Active Substance: OXYCODONE
     Indication: Product used for unknown indication
  201. OXYCODONE TEREPHTHALATE [Concomitant]
     Active Substance: OXYCODONE TEREPHTHALATE
     Indication: Product used for unknown indication
  202. PERIOGARD [Concomitant]
     Active Substance: CHLORHEXIDINE GLUCONATE
     Indication: Product used for unknown indication
  203. PERIOGARD [Concomitant]
     Active Substance: CHLORHEXIDINE GLUCONATE
  204. PERIOGARD [Concomitant]
     Active Substance: CHLORHEXIDINE GLUCONATE
  205. PHTHALYLSULFATHIAZOLE [Concomitant]
     Active Substance: PHTHALYLSULFATHIAZOLE
     Indication: Rheumatoid arthritis
  206. PHTHALYLSULFATHIAZOLE [Concomitant]
     Active Substance: PHTHALYLSULFATHIAZOLE
     Route: 048
  207. PHTHALYLSULFATHIAZOLE [Concomitant]
     Active Substance: PHTHALYLSULFATHIAZOLE
     Route: 048
  208. PHTHALYLSULFATHIAZOLE [Concomitant]
     Active Substance: PHTHALYLSULFATHIAZOLE
     Route: 048
  209. PHTHALYLSULFATHIAZOLE [Concomitant]
     Active Substance: PHTHALYLSULFATHIAZOLE
     Route: 016
  210. PHTHALYLSULFATHIAZOLE [Concomitant]
     Active Substance: PHTHALYLSULFATHIAZOLE
     Route: 048
  211. PHTHALYLSULFATHIAZOLE [Concomitant]
     Active Substance: PHTHALYLSULFATHIAZOLE
     Route: 048
  212. PHTHALYLSULFATHIAZOLE [Concomitant]
     Active Substance: PHTHALYLSULFATHIAZOLE
  213. PHTHALYLSULFATHIAZOLE [Concomitant]
     Active Substance: PHTHALYLSULFATHIAZOLE
  214. PHTHALYLSULFATHIAZOLE [Concomitant]
     Active Substance: PHTHALYLSULFATHIAZOLE
     Route: 058
  215. HYDROXYCHLOROQUINE DIPHOSPHATE [Concomitant]
     Active Substance: HYDROXYCHLOROQUINE DIPHOSPHATE
     Indication: Rheumatoid arthritis
  216. PREDNISONE [Concomitant]
     Active Substance: PREDNISONE
     Indication: Rheumatoid arthritis
     Route: 048
  217. PREDNISONE [Concomitant]
     Active Substance: PREDNISONE
     Indication: Condition aggravated
     Route: 048
  218. PREDNISONE [Concomitant]
     Active Substance: PREDNISONE
     Route: 048
  219. PREDNISONE [Concomitant]
     Active Substance: PREDNISONE
  220. PREDNISONE [Concomitant]
     Active Substance: PREDNISONE
  221. PREDNISONE [Concomitant]
     Active Substance: PREDNISONE
  222. PREDNISONE [Concomitant]
     Active Substance: PREDNISONE
  223. PREDNISONE [Concomitant]
     Active Substance: PREDNISONE
     Route: 048
  224. PREDNISONE [Concomitant]
     Active Substance: PREDNISONE
  225. PREDNISONE [Concomitant]
     Active Substance: PREDNISONE
  226. PREDNISONE [Concomitant]
     Active Substance: PREDNISONE
  227. PREDNISONE [Concomitant]
     Active Substance: PREDNISONE
  228. PSEUDOEPHEDRINE HYDROCHLORIDE [Concomitant]
     Active Substance: PSEUDOEPHEDRINE HYDROCHLORIDE
     Indication: Rheumatoid arthritis
  229. PSEUDOEPHEDRINE HYDROCHLORIDE [Concomitant]
     Active Substance: PSEUDOEPHEDRINE HYDROCHLORIDE
  230. PSEUDOEPHEDRINE HYDROCHLORIDE [Concomitant]
     Active Substance: PSEUDOEPHEDRINE HYDROCHLORIDE
  231. PSEUDOEPHEDRINE HYDROCHLORIDE [Concomitant]
     Active Substance: PSEUDOEPHEDRINE HYDROCHLORIDE
  232. PSEUDOEPHEDRINE HYDROCHLORIDE [Concomitant]
     Active Substance: PSEUDOEPHEDRINE HYDROCHLORIDE
  233. CETIRIZINE HYDROCHLORIDE [Concomitant]
     Active Substance: CETIRIZINE HYDROCHLORIDE
     Indication: Rheumatoid arthritis
  234. CETIRIZINE HYDROCHLORIDE [Concomitant]
     Active Substance: CETIRIZINE HYDROCHLORIDE
     Route: 048
  235. CETIRIZINE HYDROCHLORIDE [Concomitant]
     Active Substance: CETIRIZINE HYDROCHLORIDE
     Route: 016
  236. REMICADE [Concomitant]
     Active Substance: INFLIXIMAB
     Indication: Rheumatoid arthritis
     Route: 042
  237. RITUXIMAB [Concomitant]
     Active Substance: RITUXIMAB
     Indication: Rheumatoid arthritis
     Route: 058
  238. RITUXIMAB [Concomitant]
     Active Substance: RITUXIMAB
     Route: 042
  239. RITUXIMAB [Concomitant]
     Active Substance: RITUXIMAB
     Route: 042
  240. RITUXIMAB [Concomitant]
     Active Substance: RITUXIMAB
     Route: 042
  241. RITUXIMAB [Concomitant]
     Active Substance: RITUXIMAB
     Route: 042
  242. RITUXIMAB [Concomitant]
     Active Substance: RITUXIMAB
     Route: 041
  243. RITUXIMAB [Concomitant]
     Active Substance: RITUXIMAB
  244. RITUXIMAB [Concomitant]
     Active Substance: RITUXIMAB
     Route: 041
  245. APREMILAST [Concomitant]
     Active Substance: APREMILAST
     Indication: Product used for unknown indication
  246. APREMILAST [Concomitant]
     Active Substance: APREMILAST
  247. HYDROCORTISONE [Concomitant]
     Active Substance: HYDROCORTISONE
     Indication: Rheumatoid arthritis
     Route: 058
  248. LEFLUNOMIDE [Concomitant]
     Active Substance: LEFLUNOMIDE
     Indication: Rheumatoid arthritis
  249. LEFLUNOMIDE [Concomitant]
     Active Substance: LEFLUNOMIDE
  250. LEFLUNOMIDE [Concomitant]
     Active Substance: LEFLUNOMIDE
  251. LEFLUNOMIDE [Concomitant]
     Active Substance: LEFLUNOMIDE
     Route: 048
  252. LEFLUNOMIDE [Concomitant]
     Active Substance: LEFLUNOMIDE
  253. LEFLUNOMIDE [Concomitant]
     Active Substance: LEFLUNOMIDE
  254. LEFLUNOMIDE [Concomitant]
     Active Substance: LEFLUNOMIDE
  255. LEFLUNOMIDE [Concomitant]
     Active Substance: LEFLUNOMIDE
     Route: 048
  256. LEFLUNOMIDE [Concomitant]
     Active Substance: LEFLUNOMIDE
     Route: 048
  257. MYCOPHENOLATE MOFETIL [Concomitant]
     Active Substance: MYCOPHENOLATE MOFETIL
     Indication: Product used for unknown indication
  258. SIMPONI [Concomitant]
     Active Substance: GOLIMUMAB
     Indication: Rheumatoid arthritis
     Route: 058
  259. SIMPONI [Concomitant]
     Active Substance: GOLIMUMAB
     Route: 058
  260. SIMPONI [Concomitant]
     Active Substance: GOLIMUMAB
     Route: 042
  261. SIMPONI [Concomitant]
     Active Substance: GOLIMUMAB
  262. SIMPONI [Concomitant]
     Active Substance: GOLIMUMAB
     Route: 058
  263. STELARA [Concomitant]
     Active Substance: USTEKINUMAB
     Indication: Psoriasis
     Route: 042
  264. STELARA [Concomitant]
     Active Substance: USTEKINUMAB
     Route: 042
  265. STELARA [Concomitant]
     Active Substance: USTEKINUMAB
     Route: 058
  266. SULFAMETHOXAZOLE [Concomitant]
     Active Substance: SULFAMETHOXAZOLE
     Indication: Product used for unknown indication
  267. SULFAMETHOXAZOLE [Concomitant]
     Active Substance: SULFAMETHOXAZOLE
     Route: 061
  268. SULFASALAZINE [Concomitant]
     Active Substance: SULFASALAZINE
     Indication: Rheumatoid arthritis
     Route: 048
  269. SULFASALAZINE [Concomitant]
     Active Substance: SULFASALAZINE
  270. SULFASALAZINE [Concomitant]
     Active Substance: SULFASALAZINE
  271. SULFASALAZINE [Concomitant]
     Active Substance: SULFASALAZINE
  272. SULFASALAZINE [Concomitant]
     Active Substance: SULFASALAZINE
  273. SULFASALAZINE [Concomitant]
     Active Substance: SULFASALAZINE
  274. SULFASALAZINE [Concomitant]
     Active Substance: SULFASALAZINE
  275. SULFASALAZINE [Concomitant]
     Active Substance: SULFASALAZINE
  276. SULFASALAZINE [Concomitant]
     Active Substance: SULFASALAZINE
  277. SULFASALAZINE [Concomitant]
     Active Substance: SULFASALAZINE
  278. SULFASALAZINE [Concomitant]
     Active Substance: SULFASALAZINE
  279. SULFASALAZINE [Concomitant]
     Active Substance: SULFASALAZINE
     Route: 048
  280. SULFASALAZINE [Concomitant]
     Active Substance: SULFASALAZINE
     Route: 048
  281. SULFASALAZINE [Concomitant]
     Active Substance: SULFASALAZINE
     Route: 048
  282. TOCILIZUMAB [Concomitant]
     Active Substance: TOCILIZUMAB
     Indication: Rheumatoid arthritis
     Route: 058
  283. TOCILIZUMAB [Concomitant]
     Active Substance: TOCILIZUMAB
     Route: 042
  284. TOCILIZUMAB [Concomitant]
     Active Substance: TOCILIZUMAB
  285. TOCILIZUMAB [Concomitant]
     Active Substance: TOCILIZUMAB
     Route: 005
  286. TOCILIZUMAB [Concomitant]
     Active Substance: TOCILIZUMAB
  287. TOFACITINIB [Concomitant]
     Active Substance: TOFACITINIB
     Indication: Rheumatoid arthritis
  288. TOFACITINIB [Concomitant]
     Active Substance: TOFACITINIB
     Route: 048
  289. TOFACITINIB [Concomitant]
     Active Substance: TOFACITINIB
     Route: 058
  290. TOFACITINIB CITRATE [Concomitant]
     Active Substance: TOFACITINIB CITRATE
     Indication: Rheumatoid arthritis
     Route: 058
  291. TOFACITINIB CITRATE [Concomitant]
     Active Substance: TOFACITINIB CITRATE
     Indication: Psoriatic arthropathy
     Route: 048
  292. TOFACITINIB CITRATE [Concomitant]
     Active Substance: TOFACITINIB CITRATE
     Route: 048
  293. TOFACITINIB CITRATE [Concomitant]
     Active Substance: TOFACITINIB CITRATE
     Route: 048
  294. TOFACITINIB CITRATE [Concomitant]
     Active Substance: TOFACITINIB CITRATE
  295. TOPICORT [Concomitant]
     Active Substance: DESOXIMETASONE
     Indication: Rheumatoid arthritis
     Route: 003
  296. TOPICORT [Concomitant]
     Active Substance: DESOXIMETASONE
     Route: 058
  297. TOPICORT [Concomitant]
     Active Substance: DESOXIMETASONE
     Route: 048
  298. USTEKINUMAB [Concomitant]
     Active Substance: USTEKINUMAB
     Indication: Psoriasis
     Route: 042
  299. USTEKINUMAB [Concomitant]
     Active Substance: USTEKINUMAB
     Route: 042
  300. USTEKINUMAB [Concomitant]
     Active Substance: USTEKINUMAB
     Route: 058
  301. USTEKINUMAB [Concomitant]
     Active Substance: USTEKINUMAB
     Route: 042
  302. USTEKINUMAB [Concomitant]
     Active Substance: USTEKINUMAB
     Route: 042
  303. USTEKINUMAB [Concomitant]
     Active Substance: USTEKINUMAB
     Route: 041
  304. USTEKINUMAB [Concomitant]
     Active Substance: USTEKINUMAB
     Route: 041
  305. USTEKINUMAB [Concomitant]
     Active Substance: USTEKINUMAB
     Route: 041
  306. USTEKINUMAB [Concomitant]
     Active Substance: USTEKINUMAB
  307. USTEKINUMAB [Concomitant]
     Active Substance: USTEKINUMAB
     Route: 041
  308. VITAMIN C [Concomitant]
     Active Substance: ASCORBIC ACID
     Indication: Product used for unknown indication
  309. VITAMIN D3 [Concomitant]
     Active Substance: CHOLECALCIFEROL
     Indication: Product used for unknown indication
  310. DICLOFENAC [Concomitant]
     Active Substance: DICLOFENAC
     Indication: Product used for unknown indication
     Route: 047
  311. DICLOFENAC [Concomitant]
     Active Substance: DICLOFENAC
     Route: 058
  312. DICLOFENAC [Concomitant]
     Active Substance: DICLOFENAC
  313. DICLOFENAC [Concomitant]
     Active Substance: DICLOFENAC
  314. DICLOFENAC [Concomitant]
     Active Substance: DICLOFENAC
  315. DICLOFENAC [Concomitant]
     Active Substance: DICLOFENAC
  316. DICLOFENAC [Concomitant]
     Active Substance: DICLOFENAC
     Route: 058
  317. PREDNISONE [Concomitant]
     Active Substance: PREDNISONE
     Indication: Rheumatoid arthritis
     Route: 048
  318. XELJANZ [Concomitant]
     Active Substance: TOFACITINIB CITRATE
     Indication: Rheumatoid arthritis
     Route: 048
  319. XELJANZ [Concomitant]
     Active Substance: TOFACITINIB CITRATE
     Indication: Psoriatic arthropathy
     Route: 048
  320. XELJANZ [Concomitant]
     Active Substance: TOFACITINIB CITRATE
  321. XELJANZ [Concomitant]
     Active Substance: TOFACITINIB CITRATE
  322. XELJANZ [Concomitant]
     Active Substance: TOFACITINIB CITRATE
     Route: 048
  323. XELJANZ [Concomitant]
     Active Substance: TOFACITINIB CITRATE
  324. XELJANZ [Concomitant]
     Active Substance: TOFACITINIB CITRATE
  325. XELJANZ [Concomitant]
     Active Substance: TOFACITINIB CITRATE
  326. XELJANZ [Concomitant]
     Active Substance: TOFACITINIB CITRATE
     Route: 048
  327. XELJANZ [Concomitant]
     Active Substance: TOFACITINIB CITRATE
     Route: 048

REACTIONS (28)
  - Asthenia [Unknown]
  - Blood cholesterol increased [Unknown]
  - Decreased appetite [Unknown]
  - Injury [Unknown]
  - Mobility decreased [Unknown]
  - Off label use [Unknown]
  - Sciatica [Unknown]
  - Hospitalisation [Unknown]
  - Adverse event [Unknown]
  - Abdominal pain upper [Unknown]
  - Dry mouth [Unknown]
  - Dyspepsia [Unknown]
  - Facet joint syndrome [Unknown]
  - Folliculitis [Unknown]
  - Hypercholesterolaemia [Unknown]
  - Hypoaesthesia [Unknown]
  - Impaired healing [Unknown]
  - Incorrect route of product administration [Unknown]
  - Inflammation [Unknown]
  - Irritable bowel syndrome [Unknown]
  - Lip dry [Unknown]
  - Lower respiratory tract infection [Unknown]
  - Lung disorder [Unknown]
  - Muscle injury [Unknown]
  - Muscle spasms [Unknown]
  - Musculoskeletal pain [Unknown]
  - Oedema [Unknown]
  - Pulmonary fibrosis [Unknown]
